FAERS Safety Report 4595599-9 (Version None)
Quarter: 2005Q1

REPORT INFORMATION
  Report Type: 
  Country: None (occurrence: None)
  Receive Date: 20050223
  Receipt Date: 20050223
  Transmission Date: 20050727
  Serious: Yes (Life-Threatening, Hospitalization)
  Sender: FDA-Public Use
  Company Number: None

PATIENT
  Age: 75 Year
  Sex: Male
  Weight: 82.3 kg

DRUGS (2)
  1. CIPROFLOXACIN HCL [Suspect]
     Indication: LEUKOCYTOSIS
     Dosage: 400 MG Q 12 H
  2. CIPROFLOXACIN HCL [Suspect]
     Indication: PYREXIA
     Dosage: 400 MG Q 12 H

REACTIONS (7)
  - ANAPHYLACTIC REACTION [None]
  - CYANOSIS [None]
  - INJECTION SITE ERYTHEMA [None]
  - INJECTION SITE RASH [None]
  - OXYGEN SATURATION DECREASED [None]
  - RESPIRATORY DISTRESS [None]
  - WHEEZING [None]
